FAERS Safety Report 23222672 (Version 1)
Quarter: 2023Q4

REPORT INFORMATION
  Report Type: Report from Study
  Country: US (occurrence: US)
  Receive Date: 20231123
  Receipt Date: 20231123
  Transmission Date: 20240109
  Serious: Yes (Hospitalization, Other)
  Sender: FDA-Public Use
  Company Number: US-OTSUKA PHARMACEUTICAL NETHERLANDS B.V.-AUR-004647

PATIENT
  Sex: Female

DRUGS (1)
  1. LUPKYNIS [Suspect]
     Active Substance: VOCLOSPORIN
     Indication: Product used for unknown indication
     Dosage: 23.7 MILLIGRAM, BID
     Route: 048
     Dates: start: 20220330

REACTIONS (8)
  - Nephritis [Unknown]
  - Dry skin [Unknown]
  - Constipation [Unknown]
  - Raynaud^s phenomenon [Unknown]
  - Pyrexia [Unknown]
  - Burning sensation [Unknown]
  - Glare [Recovered/Resolved]
  - Arthralgia [Recovered/Resolved]
